FAERS Safety Report 5278671-X (Version None)
Quarter: 2007Q1

REPORT INFORMATION
  Report Type: 
  Country: None (occurrence: None)
  Receive Date: 20070321
  Receipt Date: 20070307
  Transmission Date: 20070707
  Serious: Yes (Death)
  Sender: FDA-Public Use
  Company Number: A-CH2007-14487

PATIENT
  Age: 77 Year
  Sex: Female
  Weight: 52 kg

DRUGS (10)
  1. TRACLEER [Suspect]
     Indication: PULMONARY HYPERTENSION
     Dosage: SEE IMAGE
     Route: 048
     Dates: start: 20040426, end: 20040523
  2. TRACLEER [Suspect]
     Indication: PULMONARY HYPERTENSION
     Dosage: SEE IMAGE
     Route: 048
     Dates: start: 20040524, end: 20070214
  3. ASCAL (CARBASALATE CALCIUM) [Concomitant]
  4. OMEPRAZOLE [Concomitant]
  5. CALCIUM (CALCIUM) [Concomitant]
  6. AZATHIOPRIN (AZATHIOPRINE) [Concomitant]
  7. PRAZOSIN GITS [Concomitant]
  8. ACETAMINOPHEN [Concomitant]
  9. PREDNISONE [Concomitant]
  10. SILDENAFIL CITRATE [Concomitant]

REACTIONS (2)
  - INFLUENZA [None]
  - NASOPHARYNGITIS [None]
